FAERS Safety Report 18937695 (Version 1)
Quarter: 2021Q1

REPORT INFORMATION
  Report Type: Spontaneous
  Country: US (occurrence: US)
  Receive Date: 20210224
  Receipt Date: 20210224
  Transmission Date: 20210420
  Serious: No
  Sender: FDA-Public Use
  Company Number: US-EISAI MEDICAL RESEARCH-EC-2021-088041

PATIENT
  Age: 54 Year
  Sex: Male

DRUGS (1)
  1. DAYVIGO [Suspect]
     Active Substance: LEMBOREXANT
     Indication: INSOMNIA
     Route: 048
     Dates: start: 20210208

REACTIONS (2)
  - Somnolence [Recovered/Resolved]
  - Wrong technique in product usage process [Recovered/Resolved]

NARRATIVE: CASE EVENT DATE: 20210211
